FAERS Safety Report 16992186 (Version 1)
Quarter: 2019Q4

REPORT INFORMATION
  Report Type: Spontaneous
  Country: UG (occurrence: UG)
  Receive Date: 20190920
  Receipt Date: 20190920
  Transmission Date: 20200122
  Serious: Yes (Hospitalization)
  Sender: FDA-Public Use
  Company Number: None

PATIENT
  Age: 84 Year
  Sex: Male

DRUGS (2)
  1. VANCOMYCIN [Suspect]
     Active Substance: VANCOMYCIN
     Indication: INFECTION PROPHYLAXIS
     Route: 042
     Dates: start: 20190811, end: 20190909
  2. DAPTOMYCIN. [Suspect]
     Active Substance: DAPTOMYCIN
     Route: 042
     Dates: start: 20190909, end: 20190915

REACTIONS (2)
  - Linear IgA disease [None]
  - Pyrexia [None]

NARRATIVE: CASE EVENT DATE: 20190909
